FAERS Safety Report 5243124-1 (Version None)
Quarter: 2007Q1

REPORT INFORMATION
  Report Type: 
  Country: None (occurrence: None)
  Receive Date: 20070221
  Receipt Date: 20070212
  Transmission Date: 20070707
  Serious: Yes (Other)
  Sender: FDA-Public Use
  Company Number: US-ABBOTT-07P-163-0356045-00

PATIENT
  Sex: Female
  Weight: 63.56 kg

DRUGS (4)
  1. DEPAKOTE [Suspect]
     Indication: MYOCLONIC EPILEPSY
     Route: 048
     Dates: start: 19800101, end: 20030101
  2. DEPAKOTE [Suspect]
  3. LAMOTRIGINE [Suspect]
     Indication: MYOCLONIC EPILEPSY
     Route: 048
     Dates: start: 20030101, end: 20040101
  4. TOPIRAMATE [Concomitant]
     Indication: DRUG USE FOR UNKNOWN INDICATION

REACTIONS (5)
  - DRUG INEFFECTIVE [None]
  - GASTROINTESTINAL DISORDER [None]
  - GRAND MAL CONVULSION [None]
  - MYOCLONUS [None]
  - WEIGHT INCREASED [None]
